FAERS Safety Report 25045681 (Version 1)
Quarter: 2025Q1

REPORT INFORMATION
  Report Type: Spontaneous
  Country: US (occurrence: None)
  Receive Date: 20250305
  Receipt Date: 20250305
  Transmission Date: 20250409
  Serious: Yes (Disabling)
  Sender: FDA-CTU
  Company Number: None

PATIENT
  Age: 63 Year
  Sex: Male
  Weight: 106.59 kg

DRUGS (8)
  1. CIPROFLOXACIN [Suspect]
     Active Substance: CIPROFLOXACIN
     Indication: Urinary tract infection
     Dosage: FREQUENCY : DAILY;?
     Route: 048
     Dates: start: 20240528, end: 20240614
  2. DEVICE [Concomitant]
     Active Substance: DEVICE
  3. NORVASC [Concomitant]
     Active Substance: AMLODIPINE BESYLATE
  4. HYDROCHLOROTHIAZIDE [Concomitant]
     Active Substance: HYDROCHLOROTHIAZIDE
  5. HYDROXYINE (ATARAX) [Concomitant]
  6. LUMIGAN [Concomitant]
     Active Substance: BIMATOPROST
  7. PRILOSEC [Concomitant]
     Active Substance: OMEPRAZOLE MAGNESIUM
  8. FLOMAX [Concomitant]
     Active Substance: TAMSULOSIN HYDROCHLORIDE

REACTIONS (9)
  - Neuropathy peripheral [None]
  - Anxiety [None]
  - Depression [None]
  - Tremor [None]
  - Sleep disorder [None]
  - Nervous system disorder [None]
  - Skin discomfort [None]
  - Quality of life decreased [None]
  - Pain [None]

NARRATIVE: CASE EVENT DATE: 20240601
